FAERS Safety Report 9956537 (Version 1)
Quarter: 2014Q1

REPORT INFORMATION
  Report Type: Report from Study
  Country: US (occurrence: US)
  Receive Date: 20140304
  Receipt Date: 20140304
  Transmission Date: 20141002
  Serious: No
  Sender: FDA-Public Use
  Company Number: US-ABBVIE-13P-163-1094528-00

PATIENT
  Sex: Female

DRUGS (6)
  1. HUMIRA [Suspect]
     Indication: COLITIS ULCERATIVE
     Route: 058
     Dates: start: 20130205
  2. ASACOL [Concomitant]
     Indication: ANTIINFLAMMATORY THERAPY
     Dosage: 8 TABS DAILY
  3. BENTYL [Concomitant]
     Indication: GASTROINTESTINAL PAIN
  4. EFFEXOR [Concomitant]
     Indication: ANXIETY
  5. PREDNISONE [Concomitant]
     Indication: PRODUCT USED FOR UNKNOWN INDICATION
     Dosage: DAILY
  6. NORTEL [Concomitant]
     Indication: CONTRACEPTION

REACTIONS (3)
  - Rash [Not Recovered/Not Resolved]
  - Hypoaesthesia [Not Recovered/Not Resolved]
  - Paraesthesia [Not Recovered/Not Resolved]
